FAERS Safety Report 7528483-9 (Version None)
Quarter: 2011Q2

REPORT INFORMATION
  Report Type: 
  Country: None (occurrence: None)
  Receive Date: 20110607
  Receipt Date: 20100812
  Transmission Date: 20111010
  Serious: No
  Sender: FDA-Public Use
  Company Number: US-ASTRAZENECA-2010SE38809

PATIENT
  Sex: Female

DRUGS (8)
  1. LORAZEPAM [Concomitant]
     Dosage: UNKNOWN
  2. CARZEPINE [Concomitant]
     Dosage: UNKNOWN
  3. PRILOSEC OTC [Suspect]
     Indication: GASTROOESOPHAGEAL REFLUX DISEASE
     Route: 048
     Dates: start: 20100612
  4. METAMUCIL-2 [Concomitant]
     Dosage: UNKNOWN
  5. MUSCLE RELAXANTS [Concomitant]
  6. PRILOSEC OTC [Suspect]
     Indication: FOAMING AT MOUTH
     Route: 048
     Dates: start: 20100612
  7. ANXIETY MEDICATIONS [Concomitant]
     Dosage: UNKNOWN
  8. LIRAPIN [Concomitant]
     Dosage: UNKNOWN

REACTIONS (2)
  - INCORRECT DRUG ADMINISTRATION DURATION [None]
  - WEIGHT DECREASED [None]
